FAERS Safety Report 23528715 (Version 1)
Quarter: 2024Q1

REPORT INFORMATION
  Report Type: Spontaneous
  Country: US (occurrence: US)
  Receive Date: 20240215
  Receipt Date: 20240215
  Transmission Date: 20240410
  Serious: No
  Sender: FDA-Public Use
  Company Number: US-ABBVIE-5632254

PATIENT
  Sex: Female

DRUGS (1)
  1. LUPRON [Suspect]
     Active Substance: LEUPROLIDE ACETATE
     Indication: Precocious puberty
     Dosage: FORM STRENGTH: 30 MILLIGRAM?LUPRON DEPOT PED. INJECTION
     Route: 065
     Dates: start: 20231205

REACTIONS (5)
  - Injection site mass [Not Recovered/Not Resolved]
  - Gait disturbance [Not Recovered/Not Resolved]
  - Injection site pain [Recovered/Resolved with Sequelae]
  - Injection site abscess [Not Recovered/Not Resolved]
  - Injection site haematoma [Not Recovered/Not Resolved]

NARRATIVE: CASE EVENT DATE: 20240101
